FAERS Safety Report 9458909 (Version 1)
Quarter: 2013Q3

REPORT INFORMATION
  Report Type: Spontaneous
  Country: TW (occurrence: TW)
  Receive Date: 20130814
  Receipt Date: 20130814
  Transmission Date: 20140515
  Serious: Yes (Hospitalization)
  Sender: FDA-Public Use
  Company Number: TW-GLAXOSMITHKLINE-B0915167A

PATIENT
  Age: 23 Year
  Sex: Female
  Weight: 53.7 kg

DRUGS (2)
  1. ELTROMBOPAG [Suspect]
     Indication: PRODUCT USED FOR UNKNOWN INDICATION
     Dosage: 25MG PER DAY
     Route: 048
     Dates: start: 20130524, end: 20130619
  2. ELTROMBOPAG [Suspect]
     Indication: PRODUCT USED FOR UNKNOWN INDICATION
     Dosage: 50MG PER DAY
     Route: 048
     Dates: start: 20130620

REACTIONS (1)
  - Haematuria [Recovered/Resolved]
